FAERS Safety Report 8357288-4 (Version None)
Quarter: 2012Q2

REPORT INFORMATION
  Report Type: 
  Country: None (occurrence: None)
  Receive Date: 20120514
  Receipt Date: 20120509
  Transmission Date: 20120825
  Serious: Yes (Other)
  Sender: FDA-Public Use
  Company Number: PHFR2012GB002154

PATIENT
  Sex: Male

DRUGS (3)
  1. PIRENZEPINE [Concomitant]
     Indication: SALIVARY HYPERSECRETION
  2. PRILOSEC [Concomitant]
  3. CLOZARIL [Suspect]
     Indication: SCHIZOPHRENIA
     Dosage: UNK
     Route: 048
     Dates: start: 20120201

REACTIONS (13)
  - C-REACTIVE PROTEIN INCREASED [None]
  - TACHYCARDIA [None]
  - PETECHIAE [None]
  - HAEMOPTYSIS [None]
  - INFLUENZA LIKE ILLNESS [None]
  - CHILLS [None]
  - THROMBOCYTOPENIA [None]
  - SALIVARY HYPERSECRETION [None]
  - BONE MARROW FAILURE [None]
  - RHINITIS [None]
  - NASOPHARYNGITIS [None]
  - PRODUCTIVE COUGH [None]
  - CONTUSION [None]
